FAERS Safety Report 23130970 (Version 1)
Quarter: 2023Q4

REPORT INFORMATION
  Report Type: Spontaneous
  Country: ES (occurrence: None)
  Receive Date: 20231031
  Receipt Date: 20231031
  Transmission Date: 20240110
  Serious: Yes (Hospitalization)
  Sender: FDA-Public Use
  Company Number: 2023A240909

PATIENT
  Age: 2 Month
  Sex: Male
  Weight: 5 kg

DRUGS (5)
  1. BEYFORTUS [Suspect]
     Active Substance: NIRSEVIMAB-ALIP
     Indication: Antiviral prophylaxis
     Dosage: 100.0MG ONCE/SINGLE ADMINISTRATION
     Route: 030
     Dates: start: 20231010, end: 20231010
  2. ROTARIX [Suspect]
     Active Substance: HUMAN ROTAVIRUS A TYPE G1P(8) STRAIN RIX4414 LIVE ANTIGEN
     Indication: Immunisation
     Route: 048
     Dates: start: 20231010, end: 20231010
  3. BEXSERO [Suspect]
     Active Substance: NEISSERIA MENINGITIDIS GROUP B FHBP FUSION PROTEIN ANTIGEN\NEISSERIA MENINGITIDIS GROUP B NADA PROTE
     Indication: Immunisation
     Dosage: 1.0DF ONCE/SINGLE ADMINISTRATION
     Route: 030
     Dates: start: 20231010, end: 20231010
  4. HEXYON [Suspect]
     Active Substance: DIPHTHERIA AND TETANUS TOXOIDS AND ACELLULAR PERTUSSIS ADSORBED, INACTIVATED POLIOVIRUS AND HAEMOPHI
     Indication: Immunisation
     Dosage: 1.0DF ONCE/SINGLE ADMINISTRATION
     Route: 048
     Dates: start: 20231010, end: 20231010
  5. PREVENAR [Suspect]
     Active Substance: PNEUMOCOCCAL 7-VALENT CONJUGATE VACCINE (DIPHTHERIA CRM197 PROTEIN)
     Indication: Immunisation
     Dosage: 1.0DF ONCE/SINGLE ADMINISTRATION
     Route: 030
     Dates: start: 20231010, end: 20231010

REACTIONS (2)
  - Vomiting [Recovered/Resolved]
  - Pyrexia [Recovered/Resolved]

NARRATIVE: CASE EVENT DATE: 20231010
